FAERS Safety Report 5100633-3 (Version None)
Quarter: 2006Q3

REPORT INFORMATION
  Report Type: 
  Country: None (occurrence: None)
  Receive Date: 20060906
  Receipt Date: 20060823
  Transmission Date: 20061208
  Serious: Yes (Other)
  Sender: FDA-Public Use
  Company Number: B0436482A

PATIENT
  Sex: Male

DRUGS (6)
  1. EPIVIR [Suspect]
     Indication: HIV INFECTION
     Dates: start: 20040401
  2. ZIAGEN [Suspect]
     Indication: HIV INFECTION
     Dates: start: 20040401
  3. ATAZANAVIR (ATAZANAVIR) [Suspect]
     Indication: HIV INFECTION
     Dates: start: 20040401
  4. RITONAVIR (RITONAVIR) [Suspect]
     Indication: HIV INFECTION
     Dates: start: 20040401
  5. SAQUINAVIR (SAQUINAVIR) [Suspect]
     Indication: HIV INFECTION
     Dates: start: 20040401
  6. STAVUDINE [Suspect]
     Indication: HIV INFECTION
     Dates: start: 20040401

REACTIONS (10)
  - ANAEMIA [None]
  - BRONCHITIS [None]
  - DRUG RESISTANCE [None]
  - IMMUNE RECONSTITUTION SYNDROME [None]
  - INFECTION IN AN IMMUNOCOMPROMISED HOST [None]
  - LIPOATROPHY [None]
  - LUNG INFECTION [None]
  - PNEUMOCYSTIS JIROVECI PNEUMONIA [None]
  - SEBORRHOEA [None]
  - WEIGHT DECREASED [None]
